FAERS Safety Report 7113371-2 (Version None)
Quarter: 2010Q4

REPORT INFORMATION
  Report Type: 
  Country: None (occurrence: None)
  Receive Date: 20101119
  Receipt Date: 20101108
  Transmission Date: 20110411
  Serious: Yes (Other)
  Sender: FDA-Public Use
  Company Number: FR-PFIZER INC-FR-WYE-H15190010

PATIENT
  Age: 57 Year
  Sex: Female
  Weight: 73 kg

DRUGS (8)
  1. NERATINIB [Suspect]
     Indication: BREAST CANCER
     Dosage: 240 MG, 1X/DAY
     Route: 048
     Dates: start: 20100430, end: 20100516
  2. NERATINIB [Suspect]
     Dosage: 200 MG, 1X/DAY
     Route: 048
     Dates: start: 20100528
  3. TEMSIROLIMUS [Suspect]
     Indication: BREAST CANCER
     Dosage: 15 MG, WEEKLY
     Route: 042
     Dates: start: 20100430, end: 20100516
  4. TEMSIROLIMUS [Suspect]
     Dosage: 15 MG, WEEKLY
     Route: 042
     Dates: start: 20100528
  5. LYRICA [Concomitant]
     Indication: TUMOUR PAIN
     Dosage: UNK
  6. DEROXAT [Concomitant]
     Indication: DEPRESSION
     Dosage: UNK
     Dates: start: 20060101
  7. LEXOMIL [Concomitant]
     Indication: ANXIETY
     Dosage: UNK
  8. ZOMETA [Concomitant]
     Indication: BONE LESION
     Dosage: UNK

REACTIONS (6)
  - ASTHENIA [None]
  - DIARRHOEA [None]
  - HYPOKALAEMIA [None]
  - HYPOPHOSPHATAEMIA [None]
  - THROMBOCYTOPENIA [None]
  - VOMITING [None]
